FAERS Safety Report 7419038-5 (Version None)
Quarter: 2011Q2

REPORT INFORMATION
  Report Type: 
  Country: None (occurrence: None)
  Receive Date: 20110404
  Receipt Date: 20110324
  Transmission Date: 20111010
  Serious: Yes (Hospitalization)
  Sender: FDA-Public Use
  Company Number: 029975

PATIENT
  Age: 3 Year
  Sex: Male

DRUGS (2)
  1. ANTIEPILEPTICS [Concomitant]
  2. KEPPRA [Suspect]
     Indication: EPILEPSY
     Dosage: 450 MG BID)

REACTIONS (4)
  - WRONG TECHNIQUE IN DRUG USAGE PROCESS [None]
  - OFF LABEL USE [None]
  - PRODUCT QUALITY ISSUE [None]
  - DRUG INEFFECTIVE [None]
